FAERS Safety Report 17925665 (Version 1)
Quarter: 2020Q2

REPORT INFORMATION
  Report Type: Spontaneous
  Country: FR (occurrence: FR)
  Receive Date: 20200622
  Receipt Date: 20200622
  Transmission Date: 20200714
  Serious: Yes (Hospitalization)
  Sender: FDA-Public Use
  Company Number: FR-MYLANLABS-2020M1056765

PATIENT
  Sex: Female

DRUGS (6)
  1. OXALIPLATIN. [Suspect]
     Active Substance: OXALIPLATIN
     Indication: LYMPHOMA
     Dosage: 6 CYCLES
     Route: 065
     Dates: start: 20190918
  2. CYCLOPHOSPHAMIDE. [Suspect]
     Active Substance: CYCLOPHOSPHAMIDE
     Indication: LYMPHOMA
     Dosage: 6 CYCLES
     Route: 065
     Dates: start: 20170105
  3. DEXAMETHASONE. [Suspect]
     Active Substance: DEXAMETHASONE
     Indication: LYMPHOMA
     Dosage: 6 CYCLES
     Route: 065
     Dates: start: 20170105
  4. RITUXIMAB. [Suspect]
     Active Substance: RITUXIMAB
     Dosage: R-GEMOX (6 CYCLES)
     Route: 065
     Dates: start: 20190918
  5. GEMCITABINE. [Suspect]
     Active Substance: GEMCITABINE
     Indication: LYMPHOMA
     Dosage: 6 CYCLES
     Route: 065
     Dates: start: 20190918
  6. RITUXIMAB. [Suspect]
     Active Substance: RITUXIMAB
     Indication: LYMPHOMA
     Dosage: RCD (6 CYCLES)
     Route: 065
     Dates: start: 20170105

REACTIONS (3)
  - Off label use [Unknown]
  - Pathological fracture [Not Recovered/Not Resolved]
  - Intentional product use issue [Unknown]
